FAERS Safety Report 20392995 (Version 1)
Quarter: 2022Q1

REPORT INFORMATION
  Report Type: Report from Study
  Country: GT (occurrence: GT)
  Receive Date: 20220128
  Receipt Date: 20220128
  Transmission Date: 20220423
  Serious: Yes (Life-Threatening, Other)
  Sender: FDA-Public Use
  Company Number: GT-NOVARTISPH-NVSC2022GT017960

PATIENT
  Age: 78 Year
  Sex: Female

DRUGS (1)
  1. METFORMIN HYDROCHLORIDE\VILDAGLIPTIN [Suspect]
     Active Substance: METFORMIN HYDROCHLORIDE\VILDAGLIPTIN
     Indication: Product used for unknown indication
     Dosage: 50/1000 MG
     Route: 065
     Dates: start: 202108

REACTIONS (5)
  - COVID-19 [Not Recovered/Not Resolved]
  - Diabetes mellitus [Unknown]
  - Cataract [Unknown]
  - Visual impairment [Unknown]
  - Memory impairment [Unknown]
